FAERS Safety Report 23738799 (Version 3)
Quarter: 2024Q2

REPORT INFORMATION
  Report Type: Spontaneous
  Country: US (occurrence: US)
  Receive Date: 20240413
  Receipt Date: 20240514
  Transmission Date: 20240715
  Serious: No
  Sender: FDA-Public Use
  Company Number: US-AMGEN-USASP2024073182

PATIENT
  Age: 66 Year
  Sex: Male

DRUGS (15)
  1. PROCRIT [Suspect]
     Active Substance: ERYTHROPOIETIN
     Indication: Blood iron decreased
     Dosage: 4000 UNIT, QWK (1 ML) FOR ABOUT 7 WEEKS)
     Route: 065
     Dates: start: 20240308
  2. PROCRIT [Suspect]
     Active Substance: ERYTHROPOIETIN
     Indication: Red blood cell count decreased
     Dosage: 4000 UNIT, QWK (1 ML) FOR ABOUT 7 WEEKS)
     Route: 065
     Dates: end: 20240420
  3. MOUNJARO [Concomitant]
     Active Substance: TIRZEPATIDE
     Indication: Diabetes mellitus
     Dosage: UNK
     Route: 065
     Dates: start: 20240415
  4. HYDROXYCHLOROQUINE [Concomitant]
     Active Substance: HYDROXYCHLOROQUINE
     Indication: Autoimmune disorder
     Dosage: UNK
     Route: 065
  5. CELECOXIB [Concomitant]
     Active Substance: CELECOXIB
     Indication: Inflammation
     Dosage: UNK
     Route: 065
     Dates: start: 20240411
  6. ATORVASTATIN [Concomitant]
     Active Substance: ATORVASTATIN
     Indication: Blood cholesterol abnormal
     Dosage: UNK
     Route: 065
  7. CARVEDILOL [Concomitant]
     Active Substance: CARVEDILOL
     Dosage: UNK
  8. TAMSULOSIN [Concomitant]
     Active Substance: TAMSULOSIN
     Indication: Renal disorder
     Dosage: UNK (0.4)
     Route: 065
  9. FINASTERIDE [Concomitant]
     Active Substance: FINASTERIDE
     Dosage: UNK
     Route: 065
  10. ANASTROZOLE [Concomitant]
     Active Substance: ANASTROZOLE
     Indication: Blood oestrogen abnormal
     Dosage: UNK
     Route: 065
  11. LEVOTHYROXINE [Concomitant]
     Active Substance: LEVOTHYROXINE\LEVOTHYROXINE SODIUM
     Indication: Thyroid therapy
     Dosage: UNK (0.075)
     Route: 065
  12. TESTOSTERONE [Concomitant]
     Active Substance: TESTOSTERONE
     Dosage: UNK
     Route: 065
  13. TOLTERODINE TARTRATE [Concomitant]
     Active Substance: TOLTERODINE TARTRATE
     Dosage: UNK
     Route: 065
  14. VITAMIN D3 [Concomitant]
     Active Substance: CHOLECALCIFEROL
     Dosage: UNK
     Route: 065
  15. IRON [Concomitant]
     Active Substance: IRON
     Dosage: UNK
     Route: 065

REACTIONS (2)
  - Blood iron decreased [Not Recovered/Not Resolved]
  - Blood creatinine increased [Unknown]

NARRATIVE: CASE EVENT DATE: 20240409
